FAERS Safety Report 7223184-9 (Version None)
Quarter: 2011Q1

REPORT INFORMATION
  Report Type: 
  Country: None (occurrence: None)
  Receive Date: 20110112
  Receipt Date: 20100224
  Transmission Date: 20110831
  Serious: No
  Sender: FDA-Public Use
  Company Number: US-ALLERGAN-1002420US

PATIENT
  Sex: Female

DRUGS (9)
  1. CRESTOR [Concomitant]
  2. RESTASIS [Suspect]
     Indication: DRY EYE
     Dosage: UNK
     Route: 047
     Dates: start: 20100223
  3. FISH OIL [Concomitant]
  4. VITAMIN B COMPLEX CAP [Concomitant]
  5. VITAMIN TAB [Concomitant]
  6. FENOFIBRATE [Concomitant]
  7. CALCIUM [Concomitant]
  8. METFORMIN [Concomitant]
  9. ATENOLOL [Concomitant]

REACTIONS (1)
  - HEADACHE [None]
